FAERS Safety Report 7156331-8 (Version None)
Quarter: 2010Q4

REPORT INFORMATION
  Report Type: 
  Country: None (occurrence: None)
  Receive Date: 20101214
  Receipt Date: 20101029
  Transmission Date: 20110411
  Serious: Yes (Other)
  Sender: FDA-Public Use
  Company Number: NL-BAXTER-2010BH029735

PATIENT
  Age: 7 Year
  Sex: Female

DRUGS (7)
  1. FORANE [Suspect]
     Indication: INDUCTION OF ANAESTHESIA
     Route: 065
  2. ATROPINE [Concomitant]
     Indication: PREMEDICATION
     Route: 065
     Dates: start: 19861201, end: 19861201
  3. CODEINE [Concomitant]
     Indication: PREMEDICATION
     Route: 065
     Dates: start: 19861201, end: 19861201
  4. DIAZEPAM [Concomitant]
     Indication: PREMEDICATION
     Route: 065
     Dates: start: 19861201, end: 19861201
  5. NITROUS OXIDE [Concomitant]
     Indication: INDUCTION OF ANAESTHESIA
     Route: 065
     Dates: start: 19861201, end: 19861201
  6. OXYGEN [Concomitant]
     Indication: INDUCTION OF ANAESTHESIA
     Route: 065
     Dates: start: 19861201, end: 19861201
  7. HALOTHANE [Concomitant]
     Indication: INDUCTION OF ANAESTHESIA
     Route: 065
     Dates: start: 19861201, end: 19861201

REACTIONS (4)
  - ANAPHYLACTIC REACTION [None]
  - BRONCHOSPASM [None]
  - RASH ERYTHEMATOUS [None]
  - TACHYCARDIA [None]
